FAERS Safety Report 14104777 (Version 1)
Quarter: 2017Q4

REPORT INFORMATION
  Report Type: Spontaneous
  Country: US (occurrence: US)
  Receive Date: 20171018
  Receipt Date: 20171018
  Transmission Date: 20180321
  Serious: No
  Sender: FDA-Public Use
  Company Number: US-AMGEN-USASP2017132695

PATIENT
  Age: 55 Year
  Sex: Male

DRUGS (6)
  1. VITAMIN D [Concomitant]
     Active Substance: CHOLECALCIFEROL
     Dosage: 4000 MG, UNK
  2. LUPRON [Concomitant]
     Active Substance: LEUPROLIDE ACETATE
  3. CALCIUM [Concomitant]
     Active Substance: CALCIUM
     Dosage: 1000 MG, UNK
  4. PROLIA [Suspect]
     Active Substance: DENOSUMAB
     Indication: OSTEOPENIA
     Dosage: UNK
     Route: 065
     Dates: start: 201706
  5. MULTIVITAMIN [Concomitant]
     Active Substance: VITAMINS
  6. BUSPAR [Concomitant]
     Active Substance: BUSPIRONE HYDROCHLORIDE

REACTIONS (5)
  - Pain [Unknown]
  - Muscle tightness [Unknown]
  - Back pain [Unknown]
  - Headache [Unknown]
  - Off label use [Unknown]
